FAERS Safety Report 25437699 (Version 3)
Quarter: 2025Q4

REPORT INFORMATION
  Report Type: Report from Study
  Country: PK (occurrence: PK)
  Receive Date: 20250616
  Receipt Date: 20251029
  Transmission Date: 20260118
  Serious: Yes (Death)
  Sender: ROCHE
  Company Number: PK-ROCHE-10000312777

PATIENT
  Age: 31 Year
  Sex: Male

DRUGS (2)
  1. RITUXIMAB [Suspect]
     Active Substance: RITUXIMAB
     Indication: Diffuse large B-cell lymphoma
     Dosage: RECEIVED 2 CYCLES UP TO 24-JUN-2023
     Route: 042
     Dates: start: 20230603, end: 20250507
  2. RITUXIMAB [Suspect]
     Active Substance: RITUXIMAB
     Route: 042

REACTIONS (2)
  - Disease progression [Fatal]
  - Hepatic rupture [Fatal]
